FAERS Safety Report 8291364 (Version 6)
Quarter: 2012Q4

REPORT INFORMATION
  Report Type: 
  Country: US (occurrence: US)
  Receive Date: 20111214
  Receipt Date: 20121010
  Transmission Date: 20130627
  Serious: Yes (Hospitalization)
  Sender: FDA-Public Use
  Company Number: US-ACTELION-A-NJ2011-58008

PATIENT
  Age: 56 Year
  Sex: Female

DRUGS (4)
  1. VELETRI [Suspect]
     Indication: PULMONARY ARTERIAL HYPERTENSION
     Dosage: 12 ng/kg, per min
     Route: 041
     Dates: start: 20120307
  2. VELETRI [Suspect]
     Dosage: 12 ng/kg, per min
     Route: 041
     Dates: start: 20110923, end: 201203
  3. COUMADIN [Concomitant]
  4. SILDENAFIL [Concomitant]

REACTIONS (16)
  - Joint swelling [Recovering/Resolving]
  - Musculoskeletal pain [Unknown]
  - Back pain [Unknown]
  - Pain in extremity [Unknown]
  - Arthralgia [Unknown]
  - Vision blurred [Not Recovered/Not Resolved]
  - Decreased appetite [Unknown]
  - Weight decreased [Unknown]
  - Nausea [Unknown]
  - Vomiting [Unknown]
  - Headache [Unknown]
  - Flushing [Unknown]
  - Fatigue [Unknown]
  - Device damage [Unknown]
  - Pain in jaw [Unknown]
  - Condition aggravated [Unknown]
